FAERS Safety Report 10247878 (Version 1)
Quarter: 2014Q2

REPORT INFORMATION
  Report Type: Spontaneous
  Country: US (occurrence: US)
  Receive Date: 20140619
  Receipt Date: 20140619
  Transmission Date: 20141212
  Serious: Yes (Hospitalization, Other)
  Sender: FDA-Public Use
  Company Number: US-GILEAD-2014-0105421

PATIENT
  Age: 46 Year
  Sex: Female

DRUGS (2)
  1. LETAIRIS [Suspect]
     Indication: PRODUCT USED FOR UNKNOWN INDICATION
     Dosage: 5 MG, QD
     Route: 065
     Dates: start: 20130808
  2. OXYGEN [Concomitant]

REACTIONS (12)
  - Bronchitis [Unknown]
  - Ascites [Unknown]
  - Cough [Unknown]
  - Unevaluable event [Unknown]
  - Somnolence [Unknown]
  - Lethargy [Unknown]
  - Unevaluable event [Unknown]
  - Dizziness [Unknown]
  - Fatigue [Unknown]
  - Oedema [Unknown]
  - Dyspnoea [Unknown]
  - Dyspnoea [Unknown]
